FAERS Safety Report 24197199 (Version 1)
Quarter: 2024Q3

REPORT INFORMATION
  Report Type: Report from Study
  Country: US (occurrence: US)
  Receive Date: 20240810
  Receipt Date: 20240810
  Transmission Date: 20241017
  Serious: Yes (Hospitalization)
  Sender: TEVA
  Company Number: US-TEVA-VS-3230332

PATIENT
  Age: 14 Year
  Sex: Female
  Weight: 91.8 kg

DRUGS (6)
  1. VINCRISTINE [Suspect]
     Active Substance: VINCRISTINE
     Indication: Acute lymphocytic leukaemia
     Route: 042
     Dates: start: 20231114
  2. METHOTREXATE [Suspect]
     Active Substance: METHOTREXATE
     Indication: Acute lymphocytic leukaemia
     Route: 037
     Dates: start: 20231114
  3. METHOTREXATE [Suspect]
     Active Substance: METHOTREXATE
     Indication: Acute lymphocytic leukaemia
     Route: 048
     Dates: start: 20231121, end: 20231127
  4. METHOTREXATE [Suspect]
     Active Substance: METHOTREXATE
     Indication: Acute lymphocytic leukaemia
     Route: 048
     Dates: start: 20231205
  5. MERCAPTOPURINE [Suspect]
     Active Substance: MERCAPTOPURINE
     Indication: Acute lymphocytic leukaemia
     Dosage: 50 MG 4 DAYS/WEEK AND 25 MG 3 DAYS/WEEK
     Route: 048
     Dates: start: 20231114, end: 20231127
  6. MERCAPTOPURINE [Suspect]
     Active Substance: MERCAPTOPURINE
     Indication: Acute lymphocytic leukaemia
     Dosage: 50 MG 4 DAYS/WEEK AND 25 MG 3 DAYS/WEEK
     Route: 048
     Dates: start: 20231205

REACTIONS (3)
  - Febrile neutropenia [Recovered/Resolved]
  - Rhinovirus infection [Unknown]
  - Enterovirus infection [Unknown]

NARRATIVE: CASE EVENT DATE: 20231101
